FAERS Safety Report 9760026 (Version 1)
Quarter: 2013Q4

REPORT INFORMATION
  Report Type: Spontaneous
  Country: US (occurrence: US)
  Receive Date: 20131216
  Receipt Date: 20131216
  Transmission Date: 20140711
  Serious: No
  Sender: FDA-Public Use
  Company Number: US-BIOGENIDEC-2013BI096390

PATIENT
  Age: 45 Year
  Sex: Female

DRUGS (1)
  1. TECFIDERA [Suspect]
     Indication: MULTIPLE SCLEROSIS
     Route: 048
     Dates: start: 20130714, end: 20130923

REACTIONS (8)
  - Formication [Unknown]
  - Oedema [Unknown]
  - Weight increased [Unknown]
  - Alopecia [Unknown]
  - Fatigue [Unknown]
  - Depression [Unknown]
  - Adverse event [Unknown]
  - Burning sensation [Unknown]
